FAERS Safety Report 25241521 (Version 2)
Quarter: 2025Q3

REPORT INFORMATION
  Report Type: Spontaneous
  Country: US (occurrence: US)
  Receive Date: 20250426
  Receipt Date: 20250926
  Transmission Date: 20251021
  Serious: No
  Sender: MERCK SHARP & DOHME LLC
  Company Number: US-009507513-2278209

PATIENT
  Sex: Male
  Weight: 113.4 kg

DRUGS (18)
  1. SOTATERCEPT [Suspect]
     Active Substance: SOTATERCEPT
     Dates: start: 20250417, end: 2025
  2. SOTATERCEPT [Suspect]
     Active Substance: SOTATERCEPT
  3. SOTATERCEPT [Suspect]
     Active Substance: SOTATERCEPT
  4. SOTATERCEPT [Suspect]
     Active Substance: SOTATERCEPT
  5. REMODULIN [Suspect]
     Active Substance: TREPROSTINIL
     Indication: Pulmonary arterial hypertension
     Route: 058
     Dates: start: 20220926
  6. REMODULIN [Suspect]
     Active Substance: TREPROSTINIL
     Indication: Pulmonary arterial hypertension
     Route: 058
     Dates: start: 20220926
  7. FLOVENT HFA [Concomitant]
     Active Substance: FLUTICASONE PROPIONATE
  8. FAMOTIDINE [Concomitant]
     Active Substance: FAMOTIDINE
  9. ACETAMINOPHEN [Concomitant]
     Active Substance: ACETAMINOPHEN
  10. GABAPENTIN [Concomitant]
     Active Substance: GABAPENTIN
  11. OXYGEN [Concomitant]
     Active Substance: OXYGEN
  12. ONDANSETRON HYDROCHLORIDE [Concomitant]
     Active Substance: ONDANSETRON HYDROCHLORIDE
  13. ZYRTEC [Concomitant]
     Active Substance: CETIRIZINE HYDROCHLORIDE
  14. TADALAFIL [Concomitant]
     Active Substance: TADALAFIL
  15. AMBRISENTAN [Concomitant]
     Active Substance: AMBRISENTAN
  16. PREDNISONE [Concomitant]
     Active Substance: PREDNISONE
  17. ITRACONAZOLE [Concomitant]
     Active Substance: ITRACONAZOLE
  18. SENNOSIDES [Concomitant]
     Active Substance: SENNOSIDES

REACTIONS (2)
  - Platelet count increased [Unknown]
  - Blood test abnormal [Unknown]

NARRATIVE: CASE EVENT DATE: 20250101
